FAERS Safety Report 7089791-1 (Version None)
Quarter: 2010Q4

REPORT INFORMATION
  Report Type: 
  Country: None (occurrence: None)
  Receive Date: 20101108
  Receipt Date: 20101026
  Transmission Date: 20110411
  Serious: Yes (Other)
  Sender: FDA-Public Use
  Company Number: PHHY2010CA45426

PATIENT
  Sex: Female

DRUGS (5)
  1. EXJADE [Suspect]
     Indication: APLASTIC ANAEMIA
     Dosage: 1625 MG, QD
     Route: 048
     Dates: start: 20091001
  2. DIOVAN [Concomitant]
     Indication: BLOOD PRESSURE
     Dosage: 80 MG, QD
     Route: 048
  3. METOPROLOL [Concomitant]
     Dosage: 25 MG, BID
     Route: 048
  4. SYNTHROID [Concomitant]
     Dosage: 150 MG, QD
     Route: 048
     Dates: start: 19880101
  5. RISEDRONATE SODIUM [Concomitant]
     Dosage: 35 MG OAW
     Route: 048

REACTIONS (3)
  - ABDOMINAL DISCOMFORT [None]
  - BACK PAIN [None]
  - HYPOTENSION [None]
